FAERS Safety Report 7089080-5 (Version None)
Quarter: 2010Q4

REPORT INFORMATION
  Report Type: 
  Country: None (occurrence: None)
  Receive Date: 20101108
  Receipt Date: 20101103
  Transmission Date: 20110411
  Serious: Yes (Hospitalization)
  Sender: FDA-Public Use
  Company Number: B0683071A

PATIENT
  Sex: Male
  Weight: 52 kg

DRUGS (16)
  1. MELPHALAN HYDROCHLORIDE [Suspect]
     Indication: MULTIPLE MYELOMA
     Dosage: 12MG PER DAY
     Route: 065
     Dates: start: 20100719
  2. THALIDOMIDE [Suspect]
     Indication: MULTIPLE MYELOMA
     Dosage: 100MG PER DAY
     Route: 048
     Dates: start: 20100719
  3. PREDNISOLONE [Suspect]
     Indication: MULTIPLE MYELOMA
     Dosage: 120MG PER DAY
     Route: 065
     Dates: start: 20100719
  4. OXYCODONE [Concomitant]
     Indication: BACK PAIN
     Dosage: 80MG TWICE PER DAY
     Route: 048
     Dates: start: 20100816, end: 20101031
  5. MOSAPRIDE [Concomitant]
     Indication: NAUSEA
     Route: 048
     Dates: start: 20100817, end: 20101025
  6. ALBIS [Concomitant]
     Indication: NAUSEA
     Route: 048
     Dates: start: 20100812, end: 20101021
  7. LACTITOL [Concomitant]
     Indication: CONSTIPATION
     Route: 048
     Dates: start: 20101021, end: 20101031
  8. ZOLPIDEM [Concomitant]
     Indication: INSOMNIA
     Route: 048
     Dates: start: 20101004, end: 20101031
  9. BENEXATE [Concomitant]
     Indication: PROPHYLAXIS
     Route: 048
     Dates: start: 20101004, end: 20101031
  10. OXIRACETAM [Concomitant]
     Route: 048
     Dates: start: 20101004, end: 20101031
  11. LEVOSULPIRIDE [Concomitant]
     Indication: NAUSEA
     Route: 048
     Dates: start: 20101021, end: 20101021
  12. NYSTATIN [Concomitant]
     Indication: CANDIDIASIS
     Dosage: 10ML TWICE PER DAY
     Route: 048
     Dates: start: 20101021, end: 20101024
  13. MAGNESIUM OXIDE [Concomitant]
     Indication: CONSTIPATION
     Dosage: 1000MG TWICE PER DAY
     Route: 048
     Dates: start: 20100809, end: 20101031
  14. AMLODIPINE [Concomitant]
     Indication: HYPERTENSION
     Route: 048
     Dates: start: 19900201
  15. IRBESARTAN [Concomitant]
     Indication: HYPERTENSION
     Route: 048
     Dates: start: 19900201
  16. ASPIRIN [Concomitant]
     Indication: THROMBOSIS PROPHYLAXIS
     Dosage: 100MG PER DAY
     Route: 048
     Dates: start: 20100719

REACTIONS (11)
  - ABDOMINAL DISTENSION [None]
  - ASTHENIA [None]
  - ATELECTASIS [None]
  - CHILLS [None]
  - HAEMOGLOBIN DECREASED [None]
  - ILEUS [None]
  - LOBAR PNEUMONIA [None]
  - NEUTROPENIA [None]
  - PNEUMONIA [None]
  - PYREXIA [None]
  - WHITE BLOOD CELL COUNT DECREASED [None]
